FAERS Safety Report 6263541-0 (Version None)
Quarter: 2009Q3

REPORT INFORMATION
  Report Type: 
  Country: None (occurrence: None)
  Receive Date: 20090710
  Receipt Date: 20090407
  Transmission Date: 20100115
  Serious: No
  Sender: FDA-Public Use
  Company Number: A0778491A

PATIENT
  Age: 37 Year
  Sex: Female

DRUGS (1)
  1. TYKERB [Suspect]
     Indication: DRUG USE FOR UNKNOWN INDICATION

REACTIONS (2)
  - ERYTHEMA [None]
  - PAIN IN EXTREMITY [None]
